FAERS Safety Report 8836885 (Version 1)
Quarter: 2012Q4

REPORT INFORMATION
  Report Type: 
  Country: TW (occurrence: TW)
  Receive Date: 20121012
  Receipt Date: 20121012
  Transmission Date: 20130627
  Serious: Yes (Other)
  Sender: FDA-Public Use
  Company Number: TW-MERCK-1210TWN001629

PATIENT
  Age: 62 Year
  Sex: Female

DRUGS (2)
  1. PEG-INTRON [Suspect]
     Indication: HEPATITIS C
     Dosage: 100 Microgram, qw
     Route: 030
     Dates: end: 201208
  2. REBETOL [Suspect]
     Indication: HEPATITIS C
     Dosage: UNK mg, UNK
     Route: 048
     Dates: end: 201208

REACTIONS (2)
  - Systemic lupus erythematosus [Recovering/Resolving]
  - Anaemia [Recovering/Resolving]
